FAERS Safety Report 9651625 (Version 1)
Quarter: 2013Q4

REPORT INFORMATION
  Report Type: Spontaneous
  Country: US (occurrence: None)
  Receive Date: 20131028
  Receipt Date: 20131028
  Transmission Date: 20140711
  Serious: No
  Sender: FDA-Public Use
  Company Number: None

PATIENT
  Age: 57 Year
  Sex: Female

DRUGS (2)
  1. OPTIRAY [Suspect]
     Indication: COMPUTERISED TOMOGRAM HEAD
     Dates: start: 20131024, end: 20131024
  2. OPTIRAY [Suspect]
     Indication: COMPUTERISED TOMOGRAM THORAX
     Dates: start: 20131024, end: 20131024

REACTIONS (3)
  - Throat irritation [None]
  - Pruritus [None]
  - Chest discomfort [None]
